FAERS Safety Report 21705749 (Version 4)
Quarter: 2025Q2

REPORT INFORMATION
  Report Type: Report from Study
  Country: CA (occurrence: CA)
  Receive Date: 20221209
  Receipt Date: 20250520
  Transmission Date: 20250717
  Serious: Yes (Death, Hospitalization, Other)
  Sender: GLAXOSMITHKLINE
  Company Number: CA-GLAXOSMITHKLINE-CA2022AMR181511

PATIENT

DRUGS (2)
  1. MEPOLIZUMAB [Suspect]
     Active Substance: MEPOLIZUMAB
     Indication: Asthma
     Dosage: 100 MG, Q4W
     Route: 058
     Dates: start: 20190905
  2. MEPOLIZUMAB [Suspect]
     Active Substance: MEPOLIZUMAB
     Indication: Asthma
     Dosage: 100 MG, Q4W
     Route: 058

REACTIONS (7)
  - Death [Fatal]
  - Thrombosis [Not Recovered/Not Resolved]
  - Cardiac failure congestive [Unknown]
  - Pain in extremity [Unknown]
  - Somnolence [Not Recovered/Not Resolved]
  - Malaise [Unknown]
  - Asthma [Unknown]

NARRATIVE: CASE EVENT DATE: 20250514
